FAERS Safety Report 9296326 (Version 2)
Quarter: 2013Q3

REPORT INFORMATION
  Report Type: Spontaneous
  Country: US (occurrence: US)
  Receive Date: 20130517
  Receipt Date: 20130815
  Transmission Date: 20140515
  Serious: Yes (Hospitalization)
  Sender: FDA-Public Use
  Company Number: US-CELGENEUS-163-21880-13051710

PATIENT
  Sex: Male

DRUGS (7)
  1. REVLIMID [Suspect]
     Indication: PLASMA CELL MYELOMA
     Dosage: 25 MILLIGRAM
     Route: 048
     Dates: start: 20130418, end: 201305
  2. VELCADE [Concomitant]
     Indication: PLASMA CELL MYELOMA
     Route: 058
     Dates: start: 20130206, end: 20130706
  3. OXYCODONE [Concomitant]
     Indication: PAIN
     Dosage: 30 MILLIGRAM
     Route: 048
     Dates: start: 201303
  4. ZOMETA [Concomitant]
     Indication: PRODUCT USED FOR UNKNOWN INDICATION
     Dosage: 24 MILLIGRAM
     Route: 041
     Dates: start: 20130327, end: 20130424
  5. DECADRON [Concomitant]
     Indication: PLASMA CELL MYELOMA
     Route: 041
     Dates: start: 20130418, end: 201305
  6. ASA [Concomitant]
     Indication: PROPHYLAXIS
     Dosage: 325 MILLIGRAM
     Route: 048
     Dates: start: 20130418
  7. FINASTERIDE [Concomitant]
     Indication: BENIGN PROSTATIC HYPERPLASIA
     Dosage: 5 MILLIGRAM
     Route: 048

REACTIONS (3)
  - Bone lesion [Recovering/Resolving]
  - Pneumonitis [Recovering/Resolving]
  - Renal failure chronic [Recovering/Resolving]
